FAERS Safety Report 5293126-4 (Version None)
Quarter: 2007Q2

REPORT INFORMATION
  Report Type: 
  Country: None (occurrence: None)
  Receive Date: 20070404
  Receipt Date: 20070327
  Transmission Date: 20071010
  Serious: Yes (Death, Other)
  Sender: FDA-Public Use
  Company Number: 163-21880-07010775

PATIENT
  Age: 77 Year
  Sex: Male

DRUGS (5)
  1. REVLIMID [Suspect]
     Indication: MULTIPLE MYELOMA
     Dosage: 25 MG, X 21 DAYS WITH 1 WEEK OFF, ORAL
     Route: 048
     Dates: start: 20061019, end: 20061211
  2. DECADRON [Suspect]
     Indication: DRUG USE FOR UNKNOWN INDICATION
     Dosage: 4 MG, QD X 4 DAYS, 1 WEEK OFF, ORAL
     Route: 048
  3. PERCOCET [Concomitant]
  4. LOVASTATIN [Concomitant]
  5. ATENOLOL [Concomitant]

REACTIONS (6)
  - ASTHENIA [None]
  - COLD SWEAT [None]
  - DIARRHOEA [None]
  - FALL [None]
  - NASOPHARYNGITIS [None]
  - SUDDEN DEATH [None]
